FAERS Safety Report 24121096 (Version 1)
Quarter: 2024Q3

REPORT INFORMATION
  Report Type: Spontaneous
  Country: US (occurrence: US)
  Receive Date: 20240722
  Receipt Date: 20240722
  Transmission Date: 20241017
  Serious: No
  Sender: BIOVITRUM
  Company Number: US-BIOVITRUM-2024-US-009892

PATIENT
  Age: 74 Year
  Sex: Female

DRUGS (2)
  1. KINERET [Suspect]
     Active Substance: ANAKINRA
     Indication: Bladder cancer
     Dosage: 2X TIMES A WEEK
     Route: 058
     Dates: start: 20240622
  2. KINERET [Suspect]
     Active Substance: ANAKINRA
     Dosage: 2X TIMES A WEEK FOR 3 MONTHS
     Route: 058

REACTIONS (3)
  - Off label use [Not Recovered/Not Resolved]
  - Hepatic enzyme increased [Unknown]
  - Pancreatic enzymes increased [Unknown]

NARRATIVE: CASE EVENT DATE: 20240622
